FAERS Safety Report 5022648-6 (Version None)
Quarter: 2006Q2

REPORT INFORMATION
  Report Type: 
  Country: None (occurrence: None)
  Receive Date: 20060609
  Receipt Date: 20060601
  Transmission Date: 20061013
  Serious: Yes (Life-Threatening, Hospitalization)
  Sender: FDA-Public Use
  Company Number: TW-JNJFOC-20060601546

PATIENT
  Age: 21 Year
  Sex: Male

DRUGS (4)
  1. IBUPROFEN [Suspect]
     Indication: PHARYNGOLARYNGEAL PAIN
  2. DICLOFENAC POTASSIUM [Suspect]
     Indication: PHARYNGOLARYNGEAL PAIN
  3. PENICILLIN [Suspect]
     Indication: TONSILLITIS
     Route: 042
  4. HYDROCORTISONE [Concomitant]
     Indication: LICHENOID KERATOSIS
     Dosage: 400 MG DAILY, TAPERED TO 200 MG DAILY

REACTIONS (13)
  - ABDOMINAL PAIN UPPER [None]
  - DIABETES MELLITUS INSULIN-DEPENDENT [None]
  - DIABETES WITH HYPEROSMOLARITY [None]
  - DIABETIC KETOACIDOSIS [None]
  - DRUG RASH WITH EOSINOPHILIA AND SYSTEMIC SYMPTOMS [None]
  - HEPATITIS [None]
  - LYMPHOCYTOSIS [None]
  - METABOLIC ACIDOSIS [None]
  - NORMOCHROMIC NORMOCYTIC ANAEMIA [None]
  - PYREXIA [None]
  - THROMBOCYTOPENIA [None]
  - TONSILLITIS [None]
  - VOMITING [None]
